FAERS Safety Report 12053042 (Version 2)
Quarter: 2016Q1

REPORT INFORMATION
  Report Type: Report from Study
  Country: US (occurrence: US)
  Receive Date: 20160209
  Receipt Date: 20160226
  Transmission Date: 20160526
  Serious: No
  Sender: FDA-Public Use
  Company Number: PHEH2016US002768

PATIENT
  Sex: Female

DRUGS (1)
  1. ILARIS [Suspect]
     Active Substance: CANAKINUMAB
     Indication: CRYOPYRIN ASSOCIATED PERIODIC SYNDROME
     Dosage: 180 MG, UNK
     Route: 058

REACTIONS (6)
  - Pyrexia [Unknown]
  - Palpitations [Unknown]
  - Malaise [Unknown]
  - Drug ineffective [Unknown]
  - Neuralgia [Unknown]
  - Arthritis [Unknown]
